FAERS Safety Report 4622542-6 (Version None)
Quarter: 2005Q1

REPORT INFORMATION
  Report Type: 
  Country: None (occurrence: None)
  Receive Date: 20050325
  Receipt Date: 20050325
  Transmission Date: 20050727
  Serious: Yes (Death)
  Sender: FDA-Public Use
  Company Number: None

PATIENT
  Age: 52 Year
  Sex: Male

DRUGS (2)
  1. NEURONTIN [Suspect]
     Indication: BIPOLAR DISORDER
     Dosage: 1800MG DAILY, ORAL
     Route: 048
     Dates: start: 20031101, end: 20040529
  2. NEURONTIN [Suspect]
     Indication: DEPRESSION
     Dosage: 1800MG DAILY, ORAL
     Route: 048
     Dates: start: 20031101, end: 20040529

REACTIONS (1)
  - SELF INJURIOUS BEHAVIOUR [None]
